FAERS Safety Report 5034853-3 (Version None)
Quarter: 2006Q2

REPORT INFORMATION
  Report Type: 
  Country: None (occurrence: None)
  Receive Date: 20060516
  Receipt Date: 20050407
  Transmission Date: 20061013
  Serious: Yes (Other)
  Sender: FDA-Public Use
  Company Number: WAES 0504USA01226

PATIENT
  Sex: Male

DRUGS (1)
  1. CRIXIVAN [Suspect]
     Indication: HIV INFECTION
     Dosage: 800 MG/TID/PO
     Route: 048
     Dates: start: 19950101

REACTIONS (2)
  - CHAPPED LIPS [None]
  - RASH [None]
